FAERS Safety Report 7499999-9 (Version None)
Quarter: 2011Q2

REPORT INFORMATION
  Report Type: 
  Country: None (occurrence: None)
  Receive Date: 20110524
  Receipt Date: 20110321
  Transmission Date: 20111010
  Serious: No
  Sender: FDA-Public Use
  Company Number: US-NOVEN-11US002041

PATIENT
  Sex: Male

DRUGS (1)
  1. DAYTRANA [Suspect]
     Indication: ATTENTION DEFICIT/HYPERACTIVITY DISORDER
     Dosage: 20 MG, QD
     Route: 062
     Dates: start: 20100901

REACTIONS (5)
  - APPLICATION SITE SCAB [None]
  - APPLICATION SITE ULCER [None]
  - APPLICATION SITE PAIN [None]
  - PRODUCT QUALITY ISSUE [None]
  - APPLICATION SITE BLEEDING [None]
